FAERS Safety Report 16365991 (Version 1)
Quarter: 2019Q2

REPORT INFORMATION
  Report Type: Report from Study
  Country: CO (occurrence: CO)
  Receive Date: 20190529
  Receipt Date: 20190529
  Transmission Date: 20190711
  Serious: No
  Sender: FDA-Public Use
  Company Number: CO-JNJFOC-20190532607

PATIENT
  Age: 58 Year
  Weight: 60 kg

DRUGS (1)
  1. STELARA [Suspect]
     Active Substance: USTEKINUMAB
     Indication: PSORIATIC ARTHROPATHY
     Route: 058
     Dates: start: 20160519

REACTIONS (5)
  - Psoriasis [Not Recovered/Not Resolved]
  - Inappropriate schedule of product administration [Unknown]
  - Thyroid function test abnormal [Unknown]
  - Lymphadenectomy [Unknown]
  - Influenza [Unknown]

NARRATIVE: CASE EVENT DATE: 20170927
